FAERS Safety Report 20924272 (Version 1)
Quarter: 2022Q2

REPORT INFORMATION
  Report Type: Report from Study
  Country: US (occurrence: US)
  Receive Date: 20220607
  Receipt Date: 20220607
  Transmission Date: 20220721
  Serious: Yes (Other)
  Sender: FDA-Public Use
  Company Number: US-ELI_LILLY_AND_COMPANY-US202206002456

PATIENT
  Age: 53 Year
  Sex: Female

DRUGS (1)
  1. RAMUCIRUMAB [Suspect]
     Active Substance: RAMUCIRUMAB
     Indication: Hepatobiliary cancer
     Dosage: 8 MG/KG, CYCLICAL
     Route: 042
     Dates: start: 20171207, end: 20171207

REACTIONS (1)
  - Gastrointestinal haemorrhage [Unknown]
